FAERS Safety Report 7238374-9 (Version None)
Quarter: 2011Q1

REPORT INFORMATION
  Report Type: 
  Country: None (occurrence: None)
  Receive Date: 20110121
  Receipt Date: 20110112
  Transmission Date: 20110831
  Serious: Yes (Other)
  Sender: FDA-Public Use
  Company Number: GR-JNJFOC-20110103482

PATIENT

DRUGS (1)
  1. REMICADE [Suspect]
     Indication: BEHCET'S SYNDROME
     Route: 042

REACTIONS (2)
  - MIGRAINE [None]
  - NERVOUS SYSTEM DISORDER [None]
